FAERS Safety Report 9519120 (Version 1)
Quarter: 2013Q3

REPORT INFORMATION
  Report Type: Spontaneous
  Country: US (occurrence: None)
  Receive Date: 20130911
  Receipt Date: 20130911
  Transmission Date: 20140515
  Serious: Yes (Other)
  Sender: FDA-Public Use
  Company Number: None

PATIENT
  Age: 39 Year
  Sex: Female
  Weight: 58.97 kg

DRUGS (2)
  1. VENLAFAXINE [Suspect]
     Indication: DEPRESSION
     Route: 048
     Dates: start: 20130515, end: 20130530
  2. VENLAFAXINE ER [Suspect]
     Indication: DEPRESSION
     Route: 048
     Dates: start: 20130530, end: 20130910

REACTIONS (8)
  - Abdominal distension [None]
  - Abdominal distension [None]
  - Discomfort [None]
  - Pain [None]
  - Flatulence [None]
  - Constipation [None]
  - Fatigue [None]
  - Inhibitory drug interaction [None]
